FAERS Safety Report 13568320 (Version 5)
Quarter: 2018Q2

REPORT INFORMATION
  Report Type: Report from Study
  Country: JP (occurrence: JP)
  Receive Date: 20170522
  Receipt Date: 20180528
  Transmission Date: 20180711
  Serious: Yes (Life-Threatening, Other)
  Sender: FDA-Public Use
  Company Number: JP-ALEXION PHARMACEUTICALS INC.-A201705318

PATIENT
  Age: 17 Year
  Sex: Female

DRUGS (41)
  1. PREDONINE [Concomitant]
     Active Substance: PREDNISOLONE
     Dosage: 60 UNK, DAILY
     Dates: start: 20170206, end: 20170209
  2. PREDONINE [Concomitant]
     Active Substance: PREDNISOLONE
     Dosage: 25 UNK, DAILY
     Route: 048
     Dates: start: 20170227, end: 20170305
  3. FUROSEMIDE. [Concomitant]
     Active Substance: FUROSEMIDE
     Indication: ATYPICAL HAEMOLYTIC URAEMIC SYNDROME
     Dosage: 20 MG, QD
     Route: 048
     Dates: start: 20170419, end: 20170919
  4. AMBISOME [Concomitant]
     Active Substance: AMPHOTERICIN B
     Indication: PRODUCT USED FOR UNKNOWN INDICATION
     Dosage: 50 MG, QD
     Route: 041
     Dates: start: 20170508, end: 20170601
  5. PREDONINE [Concomitant]
     Active Substance: PREDNISOLONE
     Dosage: 60 UNK, DAILY
     Route: 048
     Dates: start: 20170331, end: 20170406
  6. AMOXICILLIN. [Concomitant]
     Active Substance: AMOXICILLIN
     Indication: INFECTION PROPHYLAXIS
     Dosage: 250 MG, BID
     Route: 048
     Dates: end: 20180313
  7. FOLIAMIN [Concomitant]
     Active Substance: FOLIC ACID
     Indication: PRODUCT USED FOR UNKNOWN INDICATION
     Dosage: 5 MG, QD
     Route: 048
     Dates: start: 20170609, end: 20170713
  8. MAXIPIME [Concomitant]
     Active Substance: CEFEPIME HYDROCHLORIDE
     Indication: PRODUCT USED FOR UNKNOWN INDICATION
     Dosage: 0.5 G, BID
     Route: 041
     Dates: start: 20170428, end: 20170504
  9. FLUCONAZOLE. [Concomitant]
     Active Substance: FLUCONAZOLE
     Indication: INFECTION PROPHYLAXIS
     Dosage: 200 MG, QD
     Route: 048
     Dates: start: 201602, end: 20170425
  10. PREDONINE [Concomitant]
     Active Substance: PREDNISOLONE
     Dosage: 40 UNK, DAILY
     Route: 048
     Dates: start: 20170215, end: 20170219
  11. VFEND [Concomitant]
     Active Substance: VORICONAZOLE
     Indication: INFECTION PROPHYLAXIS
     Dosage: 200 MG, BID
     Route: 042
     Dates: start: 20170426, end: 20170622
  12. RITUXIMAB. [Concomitant]
     Active Substance: RITUXIMAB
     Indication: MICROANGIOPATHIC HAEMOLYTIC ANAEMIA
     Dosage: 500 MG, QW
     Route: 041
     Dates: start: 20170417, end: 20170501
  13. SOLIRIS [Suspect]
     Active Substance: ECULIZUMAB
     Indication: ATYPICAL HAEMOLYTIC URAEMIC SYNDROME
     Dosage: 900 MG, QW
     Route: 042
     Dates: start: 20170508, end: 20170526
  14. DAIPHEN [Concomitant]
     Active Substance: SULFAMETHOXAZOLE\TRIMETHOPRIM
     Indication: INFECTION PROPHYLAXIS
  15. CORTRIL [Concomitant]
     Active Substance: HYDROCORTISONE
     Indication: PRODUCT USED FOR UNKNOWN INDICATION
     Dosage: 15 MG, DAILY
     Route: 048
     Dates: start: 20170523, end: 20170622
  16. SOLIRIS [Suspect]
     Active Substance: ECULIZUMAB
     Dosage: 1200 MG, Q2W
     Route: 042
     Dates: start: 20170601
  17. PREDONINE [Concomitant]
     Active Substance: PREDNISOLONE
     Dosage: 80 UNK, DAILY
     Route: 048
     Dates: start: 20170131, end: 20170205
  18. PREDONINE [Concomitant]
     Active Substance: PREDNISOLONE
     Dosage: 40 UNK, DAILY
     Route: 048
     Dates: start: 20170306, end: 20170320
  19. PREDONINE [Concomitant]
     Active Substance: PREDNISOLONE
     Dosage: 30 UNK, DAILY
     Route: 048
     Dates: start: 20170414, end: 20170420
  20. PREDONINE [Concomitant]
     Active Substance: PREDNISOLONE
     Dosage: 6 UNK, DAILY
     Route: 048
     Dates: start: 20170519, end: 20170522
  21. ETHYL ICOSAPENTATE [Concomitant]
     Active Substance: ICOSAPENT ETHYL
     Indication: PRODUCT USED FOR UNKNOWN INDICATION
     Dosage: 600 MG, BID
     Route: 048
     Dates: end: 20171219
  22. ENALAPRIL [Concomitant]
     Active Substance: ENALAPRIL
     Indication: ATYPICAL HAEMOLYTIC URAEMIC SYNDROME
     Dosage: 2.5 MG, QD
     Route: 048
     Dates: start: 20170525, end: 20170706
  23. MEROPENEM. [Concomitant]
     Active Substance: MEROPENEM
     Indication: PRODUCT USED FOR UNKNOWN INDICATION
     Dosage: 0.5 G, BID
     Route: 041
     Dates: start: 20170505, end: 20170604
  24. TEICOPLANIN [Concomitant]
     Active Substance: TEICOPLANIN
     Indication: PRODUCT USED FOR UNKNOWN INDICATION
     Dosage: 400 MG, QD
     Route: 041
     Dates: start: 20170508, end: 20170623
  25. PREDONINE [Concomitant]
     Active Substance: PREDNISOLONE
     Dosage: 80 UNK, DAILY
     Route: 048
     Dates: start: 20170321, end: 20170330
  26. PREDONINE [Concomitant]
     Active Substance: PREDNISOLONE
     Dosage: 40 UNK, DAILY
     Route: 048
     Dates: start: 20170407, end: 20170413
  27. PREDONINE [Concomitant]
     Active Substance: PREDNISOLONE
     Dosage: 20 UNK, DAILY
     Route: 048
     Dates: start: 20170421, end: 20170427
  28. PREDONINE [Concomitant]
     Active Substance: PREDNISOLONE
     Dosage: 8 UNK, DAILY
     Route: 048
     Dates: start: 20170512, end: 20170518
  29. AMLODIPIN                          /00972401/ [Concomitant]
     Active Substance: AMLODIPINE BESYLATE
     Indication: ATYPICAL HAEMOLYTIC URAEMIC SYNDROME
     Dosage: 2.5 MG, QD
     Route: 048
     Dates: start: 20170202, end: 20170727
  30. AMLODIPIN                          /00972401/ [Concomitant]
     Active Substance: AMLODIPINE BESYLATE
     Indication: HYPERTENSION
  31. DAIPHEN [Concomitant]
     Active Substance: SULFAMETHOXAZOLE\TRIMETHOPRIM
     Indication: ACUTE LYMPHOCYTIC LEUKAEMIA
     Dosage: 1 DF, BID
     Route: 048
     Dates: start: 201602
  32. TEPRENONE [Concomitant]
     Active Substance: TEPRENONE
     Indication: PRODUCT USED FOR UNKNOWN INDICATION
     Dosage: 50 MG, TID
     Route: 048
     Dates: start: 2016, end: 20170511
  33. MINOMYCIN [Concomitant]
     Active Substance: MINOCYCLINE HYDROCHLORIDE
     Indication: PRODUCT USED FOR UNKNOWN INDICATION
     Dosage: 100 MG, QD
     Route: 041
     Dates: start: 20170508, end: 20170515
  34. SULBACILLIN [Concomitant]
     Active Substance: AMPICILLIN SODIUM\SULBACTAM SODIUM
     Indication: PRODUCT USED FOR UNKNOWN INDICATION
     Dosage: 1.5 G, BID
     Route: 041
     Dates: start: 20170612, end: 20170623
  35. PREDONINE [Concomitant]
     Active Substance: PREDNISOLONE
     Indication: HAEMOLYTIC URAEMIC SYNDROME
     Dosage: UNK
     Route: 042
  36. PREDONINE [Concomitant]
     Active Substance: PREDNISOLONE
     Dosage: 50 UNK, DAILY
     Route: 048
     Dates: start: 20170210, end: 20170214
  37. PREDONINE [Concomitant]
     Active Substance: PREDNISOLONE
     Dosage: 30 UNK, DAILY
     Route: 048
     Dates: start: 20170220, end: 20170226
  38. PREDONINE [Concomitant]
     Active Substance: PREDNISOLONE
     Dosage: 15 UNK, DAILY
     Route: 048
     Dates: start: 20170428, end: 20170503
  39. PREDONINE [Concomitant]
     Active Substance: PREDNISOLONE
     Dosage: 10 UNK, DAILY
     Route: 048
     Dates: start: 20170504, end: 20170511
  40. VALACICLOVIR [Concomitant]
     Active Substance: VALACYCLOVIR HYDROCHLORIDE
     Indication: INFECTION PROPHYLAXIS
     Dosage: 500 MG, BID
     Route: 048
     Dates: start: 2016, end: 20170525
  41. MAXIPIME [Concomitant]
     Active Substance: CEFEPIME HYDROCHLORIDE
     Dosage: 0.5 G, BID
     Route: 041
     Dates: start: 20170605, end: 20170611

REACTIONS (2)
  - Pericardial effusion [Recovered/Resolved]
  - Renal impairment [Not Recovered/Not Resolved]

NARRATIVE: CASE EVENT DATE: 20170509
